FAERS Safety Report 24280696 (Version 1)
Quarter: 2024Q3

REPORT INFORMATION
  Report Type: Report from Study
  Country: US (occurrence: US)
  Receive Date: 20240904
  Receipt Date: 20240904
  Transmission Date: 20241017
  Serious: Yes (Hospitalization)
  Sender: TAKEDA
  Company Number: US-TAKEDA-2021TUS063350

PATIENT
  Sex: Female

DRUGS (2)
  1. PONATINIB [Suspect]
     Active Substance: PONATINIB
     Indication: Acute myeloid leukaemia
     Dosage: 30 MILLIGRAM, QD
     Route: 048
  2. PONATINIB [Suspect]
     Active Substance: PONATINIB
     Dosage: 30 MILLIGRAM, QD
     Route: 048

REACTIONS (7)
  - Hospitalisation [Unknown]
  - Heavy menstrual bleeding [Unknown]
  - Memory impairment [Unknown]
  - Product dose omission issue [Unknown]
  - Headache [Unknown]
  - Rash [Recovered/Resolved]
  - Blood pressure increased [Unknown]
